FAERS Safety Report 16828346 (Version 1)
Quarter: 2019Q3

REPORT INFORMATION
  Report Type: Report from Study
  Country: CA (occurrence: CA)
  Receive Date: 20190919
  Receipt Date: 20190919
  Transmission Date: 20191005
  Serious: Yes (Other)
  Sender: FDA-Public Use
  Company Number: CA-TEVA-2018-CA-969283

PATIENT

DRUGS (2)
  1. VINCRISTINE [Suspect]
     Active Substance: VINCRISTINE
     Indication: GLIOMA
     Dosage: RECEIVED INDUCTION PHASE (10 WEEKS) OF THE REGIMEN AND THEN RECEIVED MAINTENANCE PHASE OF THE REG...
     Route: 065
  2. CARBOPLATIN. [Suspect]
     Active Substance: CARBOPLATIN
     Indication: GLIOMA
     Dosage: RECEIVED INDUCTION PHASE (10 WEEKS) OF THE REGIMEN AND THEN RECEIVED MAINTENANCE PHASE OF THE REG...
     Route: 042

REACTIONS (2)
  - Dysphagia [Unknown]
  - Respiratory distress [Unknown]
